FAERS Safety Report 5463391-9 (Version None)
Quarter: 2007Q3

REPORT INFORMATION
  Report Type: 
  Country: None (occurrence: None)
  Receive Date: 20070920
  Receipt Date: 20070917
  Transmission Date: 20080115
  Serious: Yes (Other)
  Sender: FDA-Public Use
  Company Number: BE-ASTRAZENECA-2007AC01760

PATIENT
  Age: 71 Year
  Sex: Female
  Weight: 65 kg

DRUGS (3)
  1. NEXIUM [Suspect]
     Indication: OESOPHAGITIS
     Route: 048
     Dates: start: 20070101
  2. AMLOR [Concomitant]
     Indication: HYPERTENSION
     Route: 048
  3. INDERAL [Concomitant]
     Indication: HYPERTENSION
     Route: 048

REACTIONS (2)
  - HYPOACUSIS [None]
  - VISUAL DISTURBANCE [None]
